FAERS Safety Report 16485042 (Version 4)
Quarter: 2020Q2

REPORT INFORMATION
  Report Type: Spontaneous
  Country: US (occurrence: US)
  Receive Date: 20190627
  Receipt Date: 20200517
  Transmission Date: 20200713
  Serious: No
  Sender: FDA-Public Use
  Company Number: US-TEVA-2019-US-1050844

PATIENT
  Sex: Female

DRUGS (10)
  1. AJOVY [Suspect]
     Active Substance: FREMANEZUMAB-VFRM
     Indication: PRODUCT USED FOR UNKNOWN INDICATION
     Route: 065
  2. TREXIMET [Concomitant]
     Active Substance: NAPROXEN SODIUM\SUMATRIPTAN SUCCINATE
  3. TOPAMAX [Concomitant]
     Active Substance: TOPIRAMATE
  4. TRAZODONE [Concomitant]
     Active Substance: TRAZODONE HYDROCHLORIDE
  5. LEXAPRO [Concomitant]
     Active Substance: ESCITALOPRAM OXALATE
  6. LINZESS [Concomitant]
     Active Substance: LINACLOTIDE
  7. FOSAMAX [Concomitant]
     Active Substance: ALENDRONATE SODIUM
  8. EPIPEN [Concomitant]
     Active Substance: EPINEPHRINE
  9. TIZANIDINE. [Concomitant]
     Active Substance: TIZANIDINE
  10. ONDANSETRON [Concomitant]
     Active Substance: ONDANSETRON

REACTIONS (2)
  - Hypersensitivity [Unknown]
  - Wheezing [Recovered/Resolved]
